FAERS Safety Report 8582596-1 (Version None)
Quarter: 2012Q3

REPORT INFORMATION
  Report Type: 
  Country: None (occurrence: None)
  Receive Date: 20120809
  Receipt Date: 20120801
  Transmission Date: 20120928
  Serious: Yes (Hospitalization)
  Sender: FDA-Public Use
  Company Number: DE-ROCHE-1096961

PATIENT
  Sex: Female

DRUGS (11)
  1. MABTHERA [Suspect]
     Indication: RHEUMATOID ARTHRITIS
     Dates: start: 20080107, end: 20080616
  2. GOLIMUMAB [Concomitant]
     Indication: RHEUMATOID ARTHRITIS
     Dates: start: 20101101, end: 20110201
  3. OMEPRAZOLE [Concomitant]
     Dates: start: 20101101
  4. METFORMIN HYDROCHLORIDE [Concomitant]
  5. PREDNISONE [Concomitant]
     Dates: start: 20020301
  6. CERTOLIZUMAB PEGOL [Suspect]
     Indication: RHEUMATOID ARTHRITIS
     Dates: start: 20120101, end: 20120516
  7. METHOTREXATE [Concomitant]
     Indication: RHEUMATOID ARTHRITIS
     Dates: start: 20080101, end: 20091101
  8. ACTEMRA [Suspect]
     Indication: RHEUMATOID ARTHRITIS
     Dates: start: 20100401, end: 20101101
  9. LEVOTHYROXINE SODIUM [Concomitant]
  10. ABATACEPT [Concomitant]
     Indication: RHEUMATOID ARTHRITIS
     Dates: start: 20090901, end: 20100301
  11. ARCOXIA [Concomitant]
     Dates: start: 20110201

REACTIONS (1)
  - THYROID CANCER RECURRENT [None]
